FAERS Safety Report 12669643 (Version 5)
Quarter: 2016Q4

REPORT INFORMATION
  Report Type: Report from Study
  Country: US (occurrence: US)
  Receive Date: 20160819
  Receipt Date: 20161018
  Transmission Date: 20170207
  Serious: Yes (Hospitalization)
  Sender: FDA-Public Use
  Company Number: US-SA-2016SA140831

PATIENT
  Age: 47 Year
  Sex: Male

DRUGS (6)
  1. BUSPIRONE [Concomitant]
     Active Substance: BUSPIRONE HYDROCHLORIDE
  2. AUBAGIO [Suspect]
     Active Substance: TERIFLUNOMIDE
     Indication: MULTIPLE SCLEROSIS
     Route: 048
     Dates: start: 20160811, end: 20161004
  3. AUBAGIO [Suspect]
     Active Substance: TERIFLUNOMIDE
     Indication: MULTIPLE SCLEROSIS
     Route: 048
     Dates: start: 20160714, end: 20160719
  4. TIZANIDINE. [Concomitant]
     Active Substance: TIZANIDINE
     Dosage: 4 MG
  5. CITALOPRAM [Concomitant]
     Active Substance: CITALOPRAM HYDROBROMIDE
     Dosage: 5 MG
  6. GABAPENTIN. [Concomitant]
     Active Substance: GABAPENTIN
     Dosage: 10MG

REACTIONS (11)
  - Tremor [Not Recovered/Not Resolved]
  - Somnolence [Not Recovered/Not Resolved]
  - Sinusitis [Recovering/Resolving]
  - Fear [Unknown]
  - Dysstasia [Unknown]
  - Nervousness [Unknown]
  - Condition aggravated [Not Recovered/Not Resolved]
  - Diplopia [Not Recovered/Not Resolved]
  - Asthenia [Not Recovered/Not Resolved]
  - Gait disturbance [Not Recovered/Not Resolved]
  - Slow speech [Recovered/Resolved]

NARRATIVE: CASE EVENT DATE: 201607
